FAERS Safety Report 23684526 (Version 1)
Quarter: 2024Q1

REPORT INFORMATION
  Report Type: Spontaneous
  Country: US (occurrence: US)
  Receive Date: 20240328
  Receipt Date: 20240328
  Transmission Date: 20240409
  Serious: No
  Sender: FDA-Public Use
  Company Number: US-Evolus, Inc.-2024EV000001

PATIENT
  Sex: Female

DRUGS (3)
  1. JEUVEAU [Suspect]
     Active Substance: PRABOTULINUMTOXINA-XVFS
     Indication: Skin wrinkling
     Dosage: 12 UNIT IN THE GLABELLA AND 15 UNITS IN THE FRONTALIS
     Dates: start: 20231011, end: 20231011
  2. JEUVEAU [Suspect]
     Active Substance: PRABOTULINUMTOXINA-XVFS
     Indication: Product used for unknown indication
     Dosage: 10 UNITS IN THE FRONTALIS
     Dates: start: 20231021, end: 20231021
  3. JEUVEAU [Suspect]
     Active Substance: PRABOTULINUMTOXINA-XVFS
     Dosage: 16 UNITS IN THE FRONTALIS
     Dates: start: 20231118, end: 20231118

REACTIONS (2)
  - Drug effect less than expected [Unknown]
  - Off label use [Unknown]
